FAERS Safety Report 8202072-5 (Version None)
Quarter: 2012Q1

REPORT INFORMATION
  Report Type: 
  Country: None (occurrence: None)
  Receive Date: 20120312
  Receipt Date: 20120301
  Transmission Date: 20120608
  Serious: Yes (Death, Hospitalization)
  Sender: FDA-Public Use
  Company Number: FR-MERCK-1203USA00619

PATIENT
  Age: 80 Year
  Sex: Female

DRUGS (12)
  1. NOROXIN [Suspect]
     Indication: URINARY TRACT INFECTION
     Route: 048
     Dates: start: 20110404, end: 20110412
  2. FURADANTIN [Suspect]
     Route: 065
     Dates: start: 20110419, end: 20110422
  3. RISPERDAL [Concomitant]
     Route: 065
  4. RISPERDAL [Concomitant]
     Route: 065
  5. RISPERDAL [Concomitant]
     Dosage: NOON
     Route: 065
  6. BISOPROLOL FUMARATE [Concomitant]
     Route: 065
  7. PREVISCAN [Concomitant]
     Dosage: ALTERNATE DAYS
     Route: 065
  8. BACTRIM [Suspect]
     Indication: URINARY TRACT INFECTION
     Route: 065
     Dates: start: 20110418, end: 20110419
  9. ACETAMINOPHEN [Concomitant]
     Dosage: 3 TIMES DAILY
     Route: 065
  10. LEVOTHYROXINE SODIUM [Concomitant]
     Route: 065
  11. ESCITALOPRAM OXALATE [Concomitant]
     Route: 065
  12. XANAX [Concomitant]
     Dosage: 3 TIMES
     Route: 065

REACTIONS (2)
  - ACUTE GENERALISED EXANTHEMATOUS PUSTULOSIS [None]
  - HEPATITIS ACUTE [None]
